FAERS Safety Report 18869456 (Version 1)
Quarter: 2021Q1

REPORT INFORMATION
  Report Type: Spontaneous
  Country: US (occurrence: US)
  Receive Date: 20210209
  Receipt Date: 20210209
  Transmission Date: 20210420
  Serious: Yes (Other)
  Sender: FDA-Public Use
  Company Number: US-B.I. PHARMACEUTICALS,INC./RIDGEFIELD-2021-BI-080795

PATIENT
  Age: 65 Year
  Sex: Male

DRUGS (1)
  1. OFEV [Suspect]
     Active Substance: NINTEDANIB
     Indication: INTERSTITIAL LUNG DISEASE
     Dosage: 150MG BID
     Dates: start: 202012

REACTIONS (5)
  - Respiratory distress [Unknown]
  - Diarrhoea [Unknown]
  - Chest discomfort [Unknown]
  - Abdominal pain upper [Unknown]
  - Back pain [Unknown]

NARRATIVE: CASE EVENT DATE: 20210203
